FAERS Safety Report 21996349 (Version 2)
Quarter: 2023Q1

REPORT INFORMATION
  Report Type: Spontaneous
  Country: US (occurrence: US)
  Receive Date: 20230215
  Receipt Date: 20230216
  Transmission Date: 20230417
  Serious: No
  Sender: FDA-Public Use
  Company Number: US-PFIZER INC-PV202200127968

PATIENT
  Age: 42 Year
  Sex: Male
  Weight: 79.365 kg

DRUGS (6)
  1. NURTEC ODT [Suspect]
     Active Substance: RIMEGEPANT SULFATE
     Indication: Migraine
     Dosage: UNK
  2. NURTEC ODT [Suspect]
     Active Substance: RIMEGEPANT SULFATE
     Dosage: 75 MG, AS NEEDED (DAILY)
     Route: 048
     Dates: start: 20221211, end: 202212
  3. NURTEC ODT [Suspect]
     Active Substance: RIMEGEPANT SULFATE
     Dosage: 75 MG, AS NEEDED (DAILY)
     Route: 048
     Dates: start: 202212
  4. BENADRYL [Concomitant]
     Active Substance: DIPHENHYDRAMINE HYDROCHLORIDE
     Dosage: UNK
  5. FLOVENT [Concomitant]
     Active Substance: FLUTICASONE PROPIONATE
     Dosage: UNK (TWO PUFFS)
  6. NALTREXONE [Concomitant]
     Active Substance: NALTREXONE
     Dosage: UNK, DAILY (ONE TENTH OF A MILLIGRAM)

REACTIONS (5)
  - Hypersensitivity [Unknown]
  - Drug ineffective [Unknown]
  - Intentional product misuse [Unknown]
  - Product dose omission issue [Unknown]
  - Product use issue [Unknown]
